FAERS Safety Report 7979696-3 (Version None)
Quarter: 2011Q4

REPORT INFORMATION
  Report Type: 
  Country: None (occurrence: None)
  Receive Date: 20111129
  Receipt Date: 20111017
  Transmission Date: 20120403
  Serious: Yes (Other)
  Sender: FDA-Public Use
  Company Number: PHEH2011US07027

PATIENT
  Age: 54 Year
  Sex: Female

DRUGS (4)
  1. CALCIUM CHANNEL BLOCKERS (NO INGREDIENTS/SUBSTANCES [Concomitant]
  2. ACE INHIBITORS (NO INGREDIENTS/SUBSTANCES) [Concomitant]
  3. EXFORGE HCT (VALSARTAN, AMLODIPINE, HYDROCHLOROTHIAZIDE) UNKNOWN [Suspect]
     Dosage: 320/10/25MG
  4. BETA BLOCKING AGENTS (NO INGREDIENTS/SUBSTANCES) [Concomitant]

REACTIONS (1)
  - RASH ERYTHEMATOUS [None]
